FAERS Safety Report 7651544-0 (Version None)
Quarter: 2011Q3

REPORT INFORMATION
  Report Type: 
  Country: None (occurrence: None)
  Receive Date: 20110802
  Receipt Date: 20110729
  Transmission Date: 20111222
  Serious: Yes (Death, Hospitalization, Other)
  Sender: FDA-Public Use
  Company Number: PHEH2007US10963

PATIENT
  Sex: Male

DRUGS (27)
  1. OMEPRAZOLE [Concomitant]
  2. TRAZODONE HYDROCHLORIDE [Concomitant]
     Indication: INSOMNIA
  3. ZOMETA [Suspect]
  4. CARDIZEM [Concomitant]
  5. METFORMIN HCL [Concomitant]
  6. CANDIDA-LOKALICID [Concomitant]
  7. TAXOTERE [Concomitant]
  8. FENTANYL [Concomitant]
  9. NOVOLIN R [Concomitant]
  10. FERROUS SULFATE TAB [Concomitant]
  11. BETAMETHASONE [Concomitant]
  12. COZAAR [Concomitant]
  13. LISINOPRIL [Concomitant]
  14. SLOW-K [Concomitant]
  15. DEXAMETHASONE [Concomitant]
  16. REGLAN [Concomitant]
  17. SUCRALFATE [Concomitant]
  18. CHEMOTHERAPEUTICS NOS [Concomitant]
  19. NOVOLOG [Concomitant]
  20. LOVENOX [Concomitant]
  21. PLAQUENIL [Concomitant]
  22. PERIDEX [Concomitant]
  23. AUGMENTIN '125' [Concomitant]
  24. RADIATION THERAPY [Concomitant]
  25. CHLORHEXIDINE GLUCONATE [Concomitant]
  26. LOPRESSOR [Concomitant]
  27. LORAZEPAM [Concomitant]

REACTIONS (65)
  - PAIN [None]
  - DEFORMITY [None]
  - TOOTH FRACTURE [None]
  - BONE DISORDER [None]
  - ANAEMIA [None]
  - DUODENAL FISTULA [None]
  - GYNAECOMASTIA [None]
  - EMOTIONAL DISTRESS [None]
  - GASTRIC ULCER [None]
  - MYOCARDIAL INFARCTION [None]
  - SPINAL CORD COMPRESSION [None]
  - APNOEA [None]
  - RESPIRATORY ARREST [None]
  - NAUSEA [None]
  - CHEST PAIN [None]
  - ATELECTASIS [None]
  - GASTRITIS [None]
  - STOMATITIS [None]
  - GASTROINTESTINAL HAEMORRHAGE [None]
  - DEPRESSION [None]
  - SINUS ARRHYTHMIA [None]
  - CONSTIPATION [None]
  - MALAISE [None]
  - CARDIOMEGALY [None]
  - INFECTION [None]
  - ANXIETY [None]
  - DISABILITY [None]
  - DERMATITIS CONTACT [None]
  - TOOTH ABSCESS [None]
  - SYNCOPE [None]
  - RENAL CYST [None]
  - PRIMARY SEQUESTRUM [None]
  - DEEP VEIN THROMBOSIS [None]
  - SERRATIA INFECTION [None]
  - PNEUMONIA [None]
  - PULSE ABSENT [None]
  - SQUAMOUS CELL CARCINOMA [None]
  - OSTEONECROSIS OF JAW [None]
  - OVERDOSE [None]
  - MASTICATION DISORDER [None]
  - DIVERTICULUM [None]
  - SINUS BRADYCARDIA [None]
  - HYPONATRAEMIA [None]
  - DISCOMFORT [None]
  - DEHYDRATION [None]
  - BACK PAIN [None]
  - BONE LOSS [None]
  - PALPITATIONS [None]
  - PULMONARY EMBOLISM [None]
  - CHOLELITHIASIS [None]
  - FATIGUE [None]
  - HYPOGLYCAEMIA [None]
  - NEOPLASM MALIGNANT [None]
  - PROSTATE CANCER [None]
  - ANHEDONIA [None]
  - GINGIVAL SWELLING [None]
  - WALKING AID USER [None]
  - CARDIAC FAILURE CONGESTIVE [None]
  - DECUBITUS ULCER [None]
  - NEURALGIA [None]
  - NEUROPATHY PERIPHERAL [None]
  - FALL [None]
  - OSTEOARTHRITIS [None]
  - MENTAL STATUS CHANGES [None]
  - ASTHENIA [None]
